FAERS Safety Report 12920953 (Version 15)
Quarter: 2018Q1

REPORT INFORMATION
  Report Type: Report from Study
  Country: US (occurrence: US)
  Receive Date: 20161107
  Receipt Date: 20180306
  Transmission Date: 20180508
  Serious: Yes (Hospitalization, Other)
  Sender: FDA-Public Use
  Company Number: US-JNJFOC-20160306997

PATIENT
  Age: 70 Year
  Sex: Female

DRUGS (28)
  1. NORVASC [Concomitant]
     Active Substance: AMLODIPINE BESYLATE
  2. AMBIEN [Concomitant]
     Active Substance: ZOLPIDEM TARTRATE
  3. IMBRUVICA [Suspect]
     Active Substance: IBRUTINIB
     Indication: CHRONIC LYMPHOCYTIC LEUKAEMIA
     Route: 048
     Dates: start: 20161129
  4. XYLOMETAZOLINE HYDROCHLORIDE [Concomitant]
     Active Substance: XYLOMETAZOLINE HYDROCHLORIDE
  5. AUGMENTIN [Concomitant]
     Active Substance: AMOXICILLIN\CLAVULANATE POTASSIUM
  6. ZETIA [Concomitant]
     Active Substance: EZETIMIBE
  7. IMBRUVICA [Suspect]
     Active Substance: IBRUTINIB
     Indication: CHRONIC LYMPHOCYTIC LEUKAEMIA
     Route: 048
     Dates: start: 20151210
  8. NOVOLOG [Concomitant]
     Active Substance: INSULIN ASPART
  9. LASIX [Concomitant]
     Active Substance: FUROSEMIDE
  10. VITAMIN D [Concomitant]
     Active Substance: CHOLECALCIFEROL
  11. TENEX [Concomitant]
     Active Substance: GUANFACINE HYDROCHLORIDE
  12. ASPIRIN. [Concomitant]
     Active Substance: ASPIRIN
  13. ALLOPURINOL. [Concomitant]
     Active Substance: ALLOPURINOL
  14. IMBRUVICA [Suspect]
     Active Substance: IBRUTINIB
     Indication: CHRONIC LYMPHOCYTIC LEUKAEMIA
     Route: 048
     Dates: start: 20171109
  15. LEVEMIR [Concomitant]
     Active Substance: INSULIN DETEMIR
  16. NEURONTIN [Concomitant]
     Active Substance: GABAPENTIN
  17. IMBRUVICA [Suspect]
     Active Substance: IBRUTINIB
     Indication: CHRONIC LYMPHOCYTIC LEUKAEMIA
     Route: 048
     Dates: start: 20150205
  18. IMBRUVICA [Suspect]
     Active Substance: IBRUTINIB
     Indication: CHRONIC LYMPHOCYTIC LEUKAEMIA
     Route: 048
     Dates: start: 20151215
  19. COREG [Concomitant]
     Active Substance: CARVEDILOL
  20. IMBRUVICA [Suspect]
     Active Substance: IBRUTINIB
     Indication: CHRONIC LYMPHOCYTIC LEUKAEMIA
     Route: 048
     Dates: start: 201503
  21. MONTELUKAST SODIUM. [Concomitant]
     Active Substance: MONTELUKAST SODIUM
  22. IMBRUVICA [Suspect]
     Active Substance: IBRUTINIB
     Indication: CHRONIC LYMPHOCYTIC LEUKAEMIA
     Route: 048
     Dates: start: 2016
  23. FERROUS SULFATE. [Concomitant]
     Active Substance: FERROUS SULFATE
  24. ATORVASTATIN [Concomitant]
     Active Substance: ATORVASTATIN
  25. IMBRUVICA [Suspect]
     Active Substance: IBRUTINIB
     Indication: CHRONIC LYMPHOCYTIC LEUKAEMIA
     Route: 048
     Dates: start: 20151209
  26. PATIROMER [Concomitant]
     Active Substance: PATIROMER
  27. LISINOPRIL. [Concomitant]
     Active Substance: LISINOPRIL
  28. IRON [Concomitant]
     Active Substance: IRON

REACTIONS (23)
  - Blood creatinine abnormal [Unknown]
  - Contusion [Unknown]
  - Blood potassium abnormal [Unknown]
  - Vitamin D decreased [Unknown]
  - Herpes zoster [Unknown]
  - Asthenia [Unknown]
  - Skin discolouration [Not Recovered/Not Resolved]
  - Blood iron decreased [Unknown]
  - Peripheral swelling [Not Recovered/Not Resolved]
  - Pain in extremity [Not Recovered/Not Resolved]
  - Dehydration [Unknown]
  - Dyspnoea [Unknown]
  - Rash macular [Unknown]
  - Chronic obstructive pulmonary disease [Unknown]
  - Pneumonia [Unknown]
  - Haemorrhage [Recovering/Resolving]
  - Muscle spasms [Unknown]
  - Obesity [Unknown]
  - Cardiac failure congestive [Unknown]
  - Loss of consciousness [Unknown]
  - Procedural pain [Unknown]
  - Atrial fibrillation [Recovering/Resolving]
  - Hypotension [Unknown]

NARRATIVE: CASE EVENT DATE: 2016
